FAERS Safety Report 7319009-3 (Version None)
Quarter: 2011Q1

REPORT INFORMATION
  Report Type: 
  Country: None (occurrence: None)
  Receive Date: 20110228
  Receipt Date: 20110216
  Transmission Date: 20110831
  Serious: No
  Sender: FDA-Public Use
  Company Number: US-JNJFOC-20110205798

PATIENT
  Sex: Male

DRUGS (4)
  1. FENTANYL-100 [Suspect]
     Indication: BACK PAIN
     Route: 062
  2. ALLOPURINOL [Concomitant]
     Indication: GOUT
     Route: 048
  3. FENTANYL-100 [Suspect]
     Indication: BACK PAIN
     Route: 062
  4. ADVIL [Concomitant]
     Indication: PAIN
     Dosage: AS NEEDED
     Route: 048

REACTIONS (7)
  - MUSCLE TWITCHING [None]
  - WRONG TECHNIQUE IN DRUG USAGE PROCESS [None]
  - BACK PAIN [None]
  - INAPPROPRIATE SCHEDULE OF DRUG ADMINISTRATION [None]
  - LARYNGITIS [None]
  - PRODUCT QUALITY ISSUE [None]
  - MUSCLE SPASMS [None]
